FAERS Safety Report 16690571 (Version 1)
Quarter: 2019Q3

REPORT INFORMATION
  Report Type: Other
  Country: IT (occurrence: IT)
  Receive Date: 20190810
  Receipt Date: 20190810
  Transmission Date: 20191004
  Serious: Yes (Hospitalization)
  Sender: FDA-Public Use
  Company Number: IT-CELLTRION INC.-2019IT023534

PATIENT

DRUGS (7)
  1. PLAQUENIL [Concomitant]
     Active Substance: HYDROXYCHLOROQUINE SULFATE
     Dosage: 2 DF
     Route: 048
  2. PARACETAMOL [Concomitant]
     Active Substance: ACETAMINOPHEN
     Dosage: 1 G
     Route: 048
  3. CARDIOASPIRIN [Concomitant]
     Active Substance: ASPIRIN
     Dosage: 100 MG
     Route: 048
     Dates: start: 20190704, end: 20190704
  4. BENTELAN [Concomitant]
     Active Substance: BETAMETHASONE SODIUM PHOSPHATE
     Dosage: 16 MG
     Route: 042
     Dates: start: 20190704, end: 20190704
  5. DIBASE [Concomitant]
     Active Substance: CHOLECALCIFEROL
     Dosage: 50 K IU
     Route: 048
  6. TRUXIMA [Suspect]
     Active Substance: RITUXIMAB-ABBS
     Indication: SJOGREN^S SYNDROME
     Dosage: 1 DF, CYCLIC
     Route: 042
     Dates: start: 20190620, end: 20190704
  7. TRIMETON [SULFAMETHOXAZOLE;TRIMETHOPRIM] [Concomitant]
     Dosage: 10 MG
     Route: 042
     Dates: start: 20190704, end: 20190704

REACTIONS (9)
  - Cyanosis [Recovering/Resolving]
  - Retching [Recovering/Resolving]
  - Syncope [Recovering/Resolving]
  - Chest discomfort [Recovering/Resolving]
  - Dyspnoea [Recovering/Resolving]
  - Diarrhoea [Recovering/Resolving]
  - Product use in unapproved indication [Unknown]
  - Chills [Recovering/Resolving]
  - Nausea [Recovering/Resolving]

NARRATIVE: CASE EVENT DATE: 20190704
